FAERS Safety Report 4717206-4 (Version None)
Quarter: 2005Q3

REPORT INFORMATION
  Report Type: 
  Country: None (occurrence: None)
  Receive Date: 20050712
  Receipt Date: 20050420
  Transmission Date: 20060218
  Serious: Yes (Other)
  Sender: FDA-Public Use
  Company Number: 2005064091

PATIENT
  Age: 56 Year
  Sex: Female

DRUGS (5)
  1. ACCUPRIL [Suspect]
     Indication: BLOOD PRESSURE
     Dosage: 80 MG (40 MG, BID INTERVAL: EVERY DAY), ORAL
     Route: 048
  2. ACCUPRIL [Suspect]
     Indication: RENAL VESSEL DISORDER
     Dosage: 80 MG (40 MG, BID INTERVAL: EVERY DAY), ORAL
     Route: 048
  3. QUINAPRIL [Suspect]
     Indication: BLOOD PRESSURE
     Dosage: 80 MG (40 MG, BID INTERVAL: EVERY DAY), ORAL
     Route: 048
     Dates: start: 20050401, end: 20050401
  4. QUINAPRIL [Suspect]
     Indication: RENAL VESSEL DISORDER
     Dosage: 80 MG (40 MG, BID INTERVAL: EVERY DAY), ORAL
     Route: 048
     Dates: start: 20050401, end: 20050401
  5. INSULIN [Concomitant]

REACTIONS (1)
  - SWELLING [None]
